FAERS Safety Report 17313024 (Version 1)
Quarter: 2020Q1

REPORT INFORMATION
  Report Type: Spontaneous
  Country: US (occurrence: US)
  Receive Date: 20200107
  Receipt Date: 20200107
  Transmission Date: 20200409
  Serious: Yes (Death)
  Sender: FDA-Public Use
  Company Number: None

PATIENT
  Sex: Female

DRUGS (13)
  1. SILDENAFIL 20MG TAB [Suspect]
     Active Substance: SILDENAFIL
     Route: 048
     Dates: start: 20160510
  2. ASPIRIN. [Concomitant]
     Active Substance: ASPIRIN
  3. ATROVASTATIN [Concomitant]
     Active Substance: ATORVASTATIN CALCIUM
  4. FLUTICASONE. [Concomitant]
     Active Substance: FLUTICASONE
  5. LOSARTAN. [Concomitant]
     Active Substance: LOSARTAN
  6. ESCITALOPRAM [Concomitant]
     Active Substance: ESCITALOPRAM OXALATE
  7. METOPROLOL TARTRATE. [Concomitant]
     Active Substance: METOPROLOL TARTRATE
  8. OXYBUTIN [Concomitant]
     Active Substance: OXYBUTYNIN
  9. PANTOPRAZOLE [Concomitant]
     Active Substance: PANTOPRAZOLE
  10. ALPRAZOLAM. [Concomitant]
     Active Substance: ALPRAZOLAM
  11. TORSEMIDE. [Concomitant]
     Active Substance: TORSEMIDE
  12. COUMADIN [Concomitant]
     Active Substance: WARFARIN SODIUM
  13. MEXILETINE [Concomitant]
     Active Substance: MEXILETINE

REACTIONS (1)
  - Death [None]
